FAERS Safety Report 5848210-0 (Version None)
Quarter: 2008Q3

REPORT INFORMATION
  Report Type: 
  Country: None (occurrence: None)
  Receive Date: 20080818
  Receipt Date: 20080812
  Transmission Date: 20090109
  Serious: Yes (Other)
  Sender: FDA-Public Use
  Company Number: B0532792A

PATIENT

DRUGS (2)
  1. SEREVENT [Suspect]
     Indication: ASTHMA
     Dosage: 50MCG FOUR TIMES PER DAY
     Route: 055
  2. FLUTIDE [Concomitant]
     Route: 055

REACTIONS (1)
  - RHABDOMYOLYSIS [None]
